FAERS Safety Report 5152586-X (Version None)
Quarter: 2006Q4

REPORT INFORMATION
  Report Type: 
  Country: None (occurrence: None)
  Receive Date: 20061109
  Receipt Date: 19950224
  Transmission Date: 20070319
  Serious: Yes (Death, Hospitalization)
  Sender: FDA-Public Use
  Company Number: 2006121648

PATIENT
  Age: 59 Year
  Sex: Male

DRUGS (5)
  1. IRINOTECAN HCL [Suspect]
     Indication: LUNG CARCINOMA CELL TYPE UNSPECIFIED STAGE IV
     Dosage: 520 MG (EVERY 3 WEEKS), INTRAVENOUS
     Route: 042
     Dates: start: 19941207, end: 19941207
  2. IRINOTECAN HCL [Suspect]
     Indication: LUNG CARCINOMA CELL TYPE UNSPECIFIED STAGE IV
     Dosage: 520 MG (EVERY 3 WEEKS), INTRAVENOUS
     Route: 042
     Dates: start: 19950206, end: 19950206
  3. AMIODARONE HCL [Concomitant]
  4. DESLANOSIDE (DESLANOSIDE) [Concomitant]
  5. DIGOXIN [Concomitant]

REACTIONS (10)
  - BRONCHOSPASM [None]
  - BUNDLE BRANCH BLOCK LEFT [None]
  - CARDIOVASCULAR DISORDER [None]
  - HAEMOGLOBIN DECREASED [None]
  - HYPONATRAEMIA [None]
  - PLATELET COUNT INCREASED [None]
  - PNEUMOTHORAX [None]
  - SUDDEN DEATH [None]
  - TACHYCARDIA [None]
  - WHITE BLOOD CELL COUNT INCREASED [None]
